FAERS Safety Report 4919552-8 (Version None)
Quarter: 2006Q1

REPORT INFORMATION
  Report Type: 
  Country: None (occurrence: None)
  Receive Date: 20060216
  Receipt Date: 20060127
  Transmission Date: 20060701
  Serious: Yes (Hospitalization, Other)
  Sender: FDA-Public Use
  Company Number: US200601005293

PATIENT
  Age: 42 Year
  Sex: Female

DRUGS (9)
  1. CYMBALTA [Suspect]
     Dosage: 30 MG,  ORAL
     Route: 048
     Dates: start: 20050721
  2. LIPITOR [Concomitant]
  3. ATENOLOL [Concomitant]
  4. COZAAR [Concomitant]
  5. COUMADIN [Concomitant]
  6. LASIX (FUROSEMIDE, FUROSEMIDE SODIUM) [Concomitant]
  7. PREVACID [Concomitant]
  8. LORTAB [Concomitant]
  9. VALIUM [Concomitant]

REACTIONS (10)
  - ABDOMINAL DISTENSION [None]
  - ASTHENIA [None]
  - COAGULOPATHY [None]
  - COMPUTERISED TOMOGRAM ABNORMAL [None]
  - GASTROINTESTINAL HAEMORRHAGE [None]
  - HEPATITIS C ANTIBODY POSITIVE [None]
  - HEPATITIS TOXIC [None]
  - NAUSEA [None]
  - SHOCK [None]
  - WEIGHT INCREASED [None]
